FAERS Safety Report 9364094 (Version 1)
Quarter: 2013Q2

REPORT INFORMATION
  Report Type: Spontaneous
  Country: US (occurrence: US)
  Receive Date: 20130624
  Receipt Date: 20130624
  Transmission Date: 20140414
  Serious: No
  Sender: FDA-Public Use
  Company Number: US-BAYER-2013-077395

PATIENT
  Age: 76 Year
  Sex: Female
  Weight: 58.96 kg

DRUGS (2)
  1. ALEVE CAPLET [Suspect]
     Indication: BACK PAIN
     Dosage: 1 DF, ONCE
     Route: 048
     Dates: start: 20130613, end: 20130613
  2. ANTIHYPERTENSIVES [Concomitant]

REACTIONS (1)
  - Epigastric discomfort [Recovered/Resolved]
